FAERS Safety Report 10697095 (Version 1)
Quarter: 2015Q1

REPORT INFORMATION
  Report Type: Spontaneous
  Country: US (occurrence: None)
  Receive Date: 20150107
  Receipt Date: 20150107
  Transmission Date: 20150721
  Serious: Yes (Hospitalization, Other)
  Sender: FDA-Public Use
  Company Number: None

PATIENT
  Age: 61 Year

DRUGS (1)
  1. TOPROL XL [Suspect]
     Active Substance: METOPROLOL SUCCINATE

REACTIONS (8)
  - Gastrooesophageal reflux disease [None]
  - Abdominal pain upper [None]
  - Oesophageal disorder [None]
  - Dyspepsia [None]
  - Discomfort [None]
  - Pharyngeal disorder [None]
  - Chest discomfort [None]
  - Eructation [None]

NARRATIVE: CASE EVENT DATE: 20141217
